FAERS Safety Report 4309793-5 (Version None)
Quarter: 2004Q1

REPORT INFORMATION
  Report Type: 
  Country: None (occurrence: None)
  Receive Date: 20040301
  Receipt Date: 20040223
  Transmission Date: 20041129
  Serious: Yes (Death)
  Sender: FDA-Public Use
  Company Number: USA-2003-0011519

PATIENT
  Age: 71 Year
  Sex: Male
  Weight: 60.3 kg

DRUGS (4)
  1. OXYCODONE HCL [Suspect]
  2. HYDROCODONE BITARTRATE [Suspect]
  3. HYDROMORPHONE HCL(SIMILAR TO IND 38,424) HYDROMOPRHONE HYDROCHLORIDE) [Suspect]
  4. CAFFEINE (CAFFEINE) [Suspect]

REACTIONS (5)
  - COMPLETED SUICIDE [None]
  - GUN SHOT WOUND [None]
  - HAEMORRHAGE INTRACRANIAL [None]
  - HEAD INJURY [None]
  - NERVOUS SYSTEM DISORDER [None]
